FAERS Safety Report 11631942 (Version 1)
Quarter: 2015Q4

REPORT INFORMATION
  Report Type: Spontaneous
  Country: US (occurrence: None)
  Receive Date: 20151001
  Receipt Date: 20151001
  Transmission Date: 20160304
  Serious: Yes (Other)
  Sender: FDA-Public Use
  Company Number: UCM201508-000583

PATIENT
  Age: 52 Year
  Sex: Female
  Weight: 108.8 kg

DRUGS (2)
  1. HYDROCHLOROTHIAZIDE (HYDROCHLOROTHIAZIDE) [Suspect]
     Active Substance: HYDROCHLOROTHIAZIDE
     Indication: HYPERTENSION
     Route: 048
  2. CLOPIDOGREL [Suspect]
     Active Substance: CLOPIDOGREL BISULFATE

REACTIONS (5)
  - Wrong drug administered [None]
  - Feeling abnormal [None]
  - Fluid retention [None]
  - Peripheral swelling [None]
  - Pulmonary oedema [None]

NARRATIVE: CASE EVENT DATE: 2008
